FAERS Safety Report 7548149-9 (Version None)
Quarter: 2011Q2

REPORT INFORMATION
  Report Type: 
  Country: None (occurrence: None)
  Receive Date: 20110524
  Receipt Date: 20110207
  Transmission Date: 20111010
  Serious: No
  Sender: FDA-Public Use
  Company Number: 026453

PATIENT
  Sex: Female

DRUGS (6)
  1. PRENATAL VITAMINS [Concomitant]
  2. FERROUS SULFATE TAB [Concomitant]
  3. CIMZIA [Suspect]
     Indication: CROHN'S DISEASE
     Dosage: 400 MG 1X/4 WEEKS, 400 MG GIVEN IN DIVIDED DOSE AS 200 MG EVERY 4 WEEKS SUBCUTANEOUS
     Route: 058
     Dates: start: 20101214
  4. ASACOL [Concomitant]
  5. PREDNISOLONE SODIUM SUCCINATE INJ [Concomitant]
  6. ACYCLOVIR [Concomitant]

REACTIONS (3)
  - DRUG EXPOSURE DURING PREGNANCY [None]
  - ABDOMINAL PAIN [None]
  - FATIGUE [None]
